FAERS Safety Report 6099666-2 (Version None)
Quarter: 2009Q1

REPORT INFORMATION
  Report Type: 
  Country: None (occurrence: None)
  Receive Date: 20090226
  Receipt Date: 20090211
  Transmission Date: 20090719
  Serious: Yes (Other)
  Sender: FDA-Public Use
  Company Number: PHH02009AT02110

PATIENT
  Age: 84 Year
  Sex: Male
  Weight: 70.0354 kg

DRUGS (4)
  1. VISUDYNE [Suspect]
     Indication: CHOROIDAL NEOVASCULARISATION
  2. VISUDYNE [Suspect]
     Indication: MACULAR DEGENERATION
  3. LUCENTIS [Suspect]
     Indication: CHOROIDAL NEOVASCULARISATION
     Dosage: 0.5 MG DAILY EY
     Route: 047
     Dates: start: 20090209, end: 20090209
  4. LUCENTIS [Suspect]
     Indication: MACULAR DEGENERATION
     Dosage: 0.5 MG DAILY EY
     Route: 047
     Dates: start: 20090209, end: 20090209

REACTIONS (4)
  - BLINDNESS TRANSIENT [None]
  - BLINDNESS UNILATERAL [None]
  - INTRAOCULAR PRESSURE INCREASED [None]
  - RETINAL ARTERY OCCLUSION [None]
